FAERS Safety Report 9892677 (Version 1)
Quarter: 2014Q1

REPORT INFORMATION
  Report Type: Spontaneous
  Country: US (occurrence: US)
  Receive Date: 20140212
  Receipt Date: 20140212
  Transmission Date: 20141002
  Serious: Yes (Other)
  Sender: FDA-Public Use
  Company Number: US-BAXTER-2014BAX006862

PATIENT
  Age: 59 Year
  Sex: Male

DRUGS (5)
  1. CEFEPIME INJECTION [Suspect]
     Indication: PSEUDOMONAS INFECTION
     Route: 065
  2. VANCOMYCIN INJECTION, USP [Suspect]
     Indication: EVIDENCE BASED TREATMENT
     Route: 065
  3. PIPERACILLIN + TAZOBACTAM [Suspect]
     Indication: PRODUCT USED FOR UNKNOWN INDICATION
     Route: 065
  4. LINEZOLID [Suspect]
     Indication: PSEUDOMONAS INFECTION
     Route: 065
  5. MEROPENEM [Concomitant]
     Indication: PRODUCT USED FOR UNKNOWN INDICATION
     Route: 065

REACTIONS (1)
  - Drug reaction with eosinophilia and systemic symptoms [Recovering/Resolving]
